FAERS Safety Report 21422896 (Version 3)
Quarter: 2022Q4

REPORT INFORMATION
  Report Type: Spontaneous
  Country: RO (occurrence: RO)
  Receive Date: 20221007
  Receipt Date: 20221020
  Transmission Date: 20230113
  Serious: Yes (Disabling, Other)
  Sender: FDA-Public Use
  Company Number: RO-ABBVIE-4143808

PATIENT
  Age: 70 Year
  Sex: Female
  Weight: 78 kg

DRUGS (9)
  1. RINVOQ [Suspect]
     Active Substance: UPADACITINIB
     Indication: Rheumatoid arthritis
     Dosage: 15 MILLIGRAM
     Route: 048
     Dates: start: 20211001
  2. ASPIRIN [Concomitant]
     Active Substance: ASPIRIN
     Indication: Myocardial ischaemia
     Dosage: 1 TABLET
     Route: 048
  3. Ezetemib [Concomitant]
     Indication: Dyslipidaemia
     Dosage: 1 TABLET
     Route: 048
  4. LOSARTAN POTASSIUM [Concomitant]
     Active Substance: LOSARTAN POTASSIUM
     Indication: Hypertension
     Dosage: 1 TABLET
     Route: 048
  5. TRIMETAZIDINE DIHYDROCHLORIDE [Concomitant]
     Active Substance: TRIMETAZIDINE DIHYDROCHLORIDE
     Indication: Myocardial ischaemia
     Dosage: 2 TABLET
     Route: 048
  6. NOLET [Concomitant]
     Indication: Hypertension
     Dosage: 1 TABLET
     Route: 048
  7. ROSUVASTATIN CALCIUM [Concomitant]
     Active Substance: ROSUVASTATIN CALCIUM
     Indication: Dyslipidaemia
     Dosage: 1 TABLET
     Route: 048
  8. TEVOCOR [Concomitant]
     Indication: Dyslipidaemia
     Dosage: 1 TABLET
     Route: 048
  9. AMLODIPINE [Concomitant]
     Active Substance: AMLODIPINE BESYLATE
     Indication: Hypertension
     Dosage: 1 TABLET
     Route: 048

REACTIONS (3)
  - Cerebrovascular accident [Recovered/Resolved with Sequelae]
  - Aphasia [Recovered/Resolved with Sequelae]
  - Hemiplegia [Recovered/Resolved with Sequelae]

NARRATIVE: CASE EVENT DATE: 20221004
